FAERS Safety Report 11044991 (Version 1)
Quarter: 2015Q2

REPORT INFORMATION
  Report Type: Spontaneous
  Country: US (occurrence: US)
  Receive Date: 20150417
  Receipt Date: 20150417
  Transmission Date: 20150821
  Serious: No
  Sender: FDA-Public Use
  Company Number: US-PFIZER INC-2015132010

PATIENT
  Age: 62 Year
  Sex: Male
  Weight: 67 kg

DRUGS (2)
  1. CYTARABINE. [Suspect]
     Active Substance: CYTARABINE
     Dosage: UNK, 2X/DAY
  2. IDARUBICIN HCL [Suspect]
     Active Substance: IDARUBICIN HYDROCHLORIDE
     Dosage: UNK, 2X/DAY

REACTIONS (2)
  - Disease progression [Unknown]
  - Acute myeloid leukaemia [Unknown]
